FAERS Safety Report 4709419-2 (Version None)
Quarter: 2005Q3

REPORT INFORMATION
  Report Type: 
  Country: None (occurrence: None)
  Receive Date: 20050708
  Receipt Date: 20050627
  Transmission Date: 20060218
  Serious: Yes (Hospitalization)
  Sender: FDA-Public Use
  Company Number: PHRM2005FR01994

PATIENT
  Age: 45 Year
  Sex: Male

DRUGS (2)
  1. SANDIMMUNE [Suspect]
     Indication: BONE MARROW TRANSPLANT
     Route: 042
     Dates: start: 20050417, end: 20050506
  2. AMBISOME [Concomitant]
     Indication: ASPERGILLOSIS
     Dosage: UNK, UNK
     Route: 042
     Dates: start: 20050409, end: 20050425

REACTIONS (6)
  - BRADYPHRENIA [None]
  - CEREBELLAR SYNDROME [None]
  - CONFUSIONAL STATE [None]
  - DYSARTHRIA [None]
  - HYPERTONIA [None]
  - NERVOUS SYSTEM DISORDER [None]
